FAERS Safety Report 25331188 (Version 2)
Quarter: 2025Q2

REPORT INFORMATION
  Report Type: Spontaneous
  Country: US (occurrence: US)
  Receive Date: 20250519
  Receipt Date: 20250620
  Transmission Date: 20250716
  Serious: No
  Sender: PFIZER
  Company Number: US-PFIZER INC-202500102386

PATIENT
  Age: 59 Year
  Sex: Male

DRUGS (19)
  1. INLYTA [Suspect]
     Active Substance: AXITINIB
     Dosage: 5 MG, 1 TABLET, 2X/DAY
     Route: 048
     Dates: start: 20250501
  2. INLYTA [Suspect]
     Active Substance: AXITINIB
  3. XANAX [Concomitant]
     Active Substance: ALPRAZOLAM
  4. CARVEDILOL [Concomitant]
     Active Substance: CARVEDILOL
  5. VENLAFAXINE [Concomitant]
     Active Substance: VENLAFAXINE HYDROCHLORIDE
  6. LISINOPRIL [Concomitant]
     Active Substance: LISINOPRIL
  7. HYDROCHLOROTHIAZIDE [Concomitant]
     Active Substance: HYDROCHLOROTHIAZIDE
  8. LAMOTRIGINE [Concomitant]
     Active Substance: LAMOTRIGINE
  9. BYSTOLIC [Concomitant]
     Active Substance: NEBIVOLOL HYDROCHLORIDE
  10. HYDRALAZINE [Concomitant]
     Active Substance: HYDRALAZINE HYDROCHLORIDE
  11. CLOPIDOGREL [Concomitant]
     Active Substance: CLOPIDOGREL BISULFATE
  12. PROCHLORPERAZINE [Concomitant]
     Active Substance: PROCHLORPERAZINE
  13. NITROGLYCERIN [Concomitant]
     Active Substance: NITROGLYCERIN
  14. LIPITOR [Concomitant]
     Active Substance: ATORVASTATIN CALCIUM
  15. NORVASC [Concomitant]
     Active Substance: AMLODIPINE BESYLATE
  16. ABILIFY [Concomitant]
     Active Substance: ARIPIPRAZOLE
  17. EDARBI [Concomitant]
     Active Substance: AZILSARTAN KAMEDOXOMIL
  18. COZAAR [Concomitant]
     Active Substance: LOSARTAN POTASSIUM
  19. ZETIA [Concomitant]
     Active Substance: EZETIMIBE

REACTIONS (2)
  - Fatigue [Not Recovered/Not Resolved]
  - Hypertension [Recovering/Resolving]
